FAERS Safety Report 8491979-X (Version None)
Quarter: 2012Q2

REPORT INFORMATION
  Report Type: 
  Country: None (occurrence: None)
  Receive Date: 20120627
  Receipt Date: 20120611
  Transmission Date: 20120825
  Serious: Yes (Hospitalization)
  Sender: FDA-Public Use
  Company Number: CIP09000865

PATIENT
  Age: 56 Year
  Sex: Female
  Weight: 81.6 kg

DRUGS (13)
  1. DYAZIDE (HYDROICHLOROTHIAZIDE, TRIAMTERENE) [Concomitant]
  2. CALCIUM + D (CALCIUM, ERGOCALCIFEROL) [Concomitant]
  3. AMBIEN CR [Concomitant]
  4. ACTONEL [Suspect]
     Indication: OSTEOPOROSIS
     Dosage: 150 MG ONCE MONTHLY, ORAL
     Route: 048
     Dates: start: 20090101
  5. TEMAZEPAM [Concomitant]
  6. HYDROCODONE BITARTRATE [Concomitant]
  7. VITAMIN B12 [Concomitant]
  8. PREMARIN VAGINAL (ESROGENS CONJUGATED) [Concomitant]
  9. SYNTHROID [Concomitant]
  10. TRILYTE (MACROGOL 3350, POTASSIUM CHLORIDE, SODIUM BICARBONATE, SODIUM [Concomitant]
  11. METOCLOPRAMIDE [Concomitant]
  12. FLEXERIL HYDROCHLORIDE [Concomitant]
  13. EVISTA [Concomitant]

REACTIONS (15)
  - GAIT DISTURBANCE [None]
  - VENTRICULAR EXTRASYSTOLES [None]
  - NAUSEA [None]
  - SPINAL COLUMN STENOSIS [None]
  - CHEST PAIN [None]
  - BURSITIS [None]
  - PAIN [None]
  - INTERVERTEBRAL DISC PROTRUSION [None]
  - NO THERAPEUTIC RESPONSE [None]
  - PARAESTHESIA ORAL [None]
  - INFLUENZA [None]
  - INTERVERTEBRAL DISC DISORDER [None]
  - INTERVERTEBRAL DISC DEGENERATION [None]
  - OSTEOARTHRITIS [None]
  - BACK PAIN [None]
